FAERS Safety Report 5062752-X (Version None)
Quarter: 2006Q3

REPORT INFORMATION
  Report Type: 
  Country: None (occurrence: None)
  Receive Date: 20060724
  Receipt Date: 20060710
  Transmission Date: 20061208
  Serious: Yes (Death)
  Sender: FDA-Public Use
  Company Number: MC200600449

PATIENT
  Age: 58 Year
  Sex: Female

DRUGS (4)
  1. ANGIOMAX [Suspect]
     Dosage: 39.1 ML, INTRAVENOUS
     Route: 042
     Dates: start: 20060301, end: 20060301
  2. ASPIRIN [Concomitant]
  3. CLOPIDOGREL [Concomitant]
  4. HEPARIN [Concomitant]

REACTIONS (2)
  - ACUTE MYOCARDIAL INFARCTION [None]
  - CARDIOGENIC SHOCK [None]
